FAERS Safety Report 6029484-2 (Version None)
Quarter: 2009Q1

REPORT INFORMATION
  Report Type: 
  Country: None (occurrence: None)
  Receive Date: 20090105
  Receipt Date: 20090105
  Transmission Date: 20090719
  Serious: Yes (Life-Threatening, Hospitalization)
  Sender: FDA-Public Use
  Company Number: None

PATIENT
  Sex: Male
  Weight: 102.0593 kg

DRUGS (1)
  1. ANECTINE [Suspect]
     Dates: start: 20081204

REACTIONS (8)
  - ARTHRALGIA [None]
  - CHILLS [None]
  - DYSARTHRIA [None]
  - MUSCULOSKELETAL STIFFNESS [None]
  - NEPHROLITHIASIS [None]
  - PAIN [None]
  - PARALYSIS [None]
  - POISONING [None]
